FAERS Safety Report 4720959-2 (Version None)
Quarter: 2005Q3

REPORT INFORMATION
  Report Type: 
  Country: None (occurrence: None)
  Receive Date: 20050720
  Receipt Date: 20050712
  Transmission Date: 20060218
  Serious: Yes (Hospitalization)
  Sender: FDA-Public Use
  Company Number: 2005099598

PATIENT
  Age: 56 Year
  Sex: Male

DRUGS (2)
  1. MINOXIDIL [Suspect]
     Indication: HYPERTENSION
     Dosage: 5 MG, ORAL
     Route: 048
     Dates: start: 20050221
  2. TORSEMIDE [Concomitant]

REACTIONS (2)
  - PLEURAL EFFUSION [None]
  - PYREXIA [None]
